FAERS Safety Report 8461641-8 (Version None)
Quarter: 2012Q2

REPORT INFORMATION
  Report Type: 
  Country: None (occurrence: None)
  Receive Date: 20120625
  Receipt Date: 20120618
  Transmission Date: 20120825
  Serious: Yes (Other)
  Sender: FDA-Public Use
  Company Number: PHHY2012DE053169

PATIENT
  Sex: Male

DRUGS (2)
  1. TRILEPTAL [Suspect]
     Dosage: 900 MG, BID
     Route: 048
  2. SEROQUEL [Interacting]
     Route: 048

REACTIONS (2)
  - DRUG INTERACTION [None]
  - CONVULSION [None]
